FAERS Safety Report 7451483-4 (Version None)
Quarter: 2011Q2

REPORT INFORMATION
  Report Type: 
  Country: None (occurrence: None)
  Receive Date: 20110502
  Receipt Date: 20110425
  Transmission Date: 20111010
  Serious: Yes (Hospitalization)
  Sender: FDA-Public Use
  Company Number: ES-SANOFI-AVENTIS-2011SA025867

PATIENT
  Age: 61 Year
  Sex: Male

DRUGS (6)
  1. NOROXIN [Concomitant]
     Indication: PROPHYLAXIS
     Route: 048
     Dates: start: 20100112
  2. URBAL [Concomitant]
     Route: 048
     Dates: start: 20091101, end: 20100122
  3. SUMIAL [Interacting]
     Indication: PROPHYLAXIS
     Route: 048
     Dates: start: 20091101
  4. OMEPRAZOLE [Concomitant]
     Indication: PROPHYLAXIS
     Route: 048
     Dates: start: 20091101
  5. ALDACTONE [Interacting]
     Indication: HEPATIC CIRRHOSIS
     Route: 048
     Dates: start: 20051201, end: 20100122
  6. SEGURIL [Suspect]
     Indication: HEPATIC CIRRHOSIS
     Route: 048
     Dates: start: 20051201, end: 20100122

REACTIONS (4)
  - BLOOD PRESSURE DECREASED [None]
  - DRUG INTERACTION [None]
  - RENAL FAILURE ACUTE [None]
  - HEART RATE DECREASED [None]
